FAERS Safety Report 4954707-8 (Version None)
Quarter: 2006Q1

REPORT INFORMATION
  Report Type: 
  Country: None (occurrence: None)
  Receive Date: 20060127
  Receipt Date: 20050928
  Transmission Date: 20060701
  Serious: Yes (Hospitalization)
  Sender: FDA-Public Use
  Company Number: 2005-US-00530

PATIENT
  Age: 42 Year
  Sex: Female
  Weight: 148.7798 kg

DRUGS (13)
  1. CLOZAPINE [Suspect]
     Indication: SCHIZOPHRENIA
     Dosage: 400 MG, QHS, ORAL
     Route: 048
     Dates: start: 20050901, end: 20050928
  2. LOMOTIL [Concomitant]
  3. BENZTROPINE MESYLATE [Concomitant]
  4. DULOXETINE HYDROCHLORIDE [Concomitant]
  5. ESCITALOPRAM OXALATE [Concomitant]
  6. FAMOTIDINE [Concomitant]
  7. HYDROCHLOROTHIAZIDE [Concomitant]
  8. LEVOTHYROXINE SODIUM [Concomitant]
  9. METFORMIN [Concomitant]
  10. MONTELUKAST [Concomitant]
  11. ZOLPIDEM TARTRATE [Concomitant]
  12. FLUPHENAZINE DECANOATE (INJECTION) [Concomitant]
  13. POTASSIUM CHLORIDE [Concomitant]

REACTIONS (3)
  - DIARRHOEA [None]
  - GRANULOCYTOPENIA [None]
  - LEUKOPENIA [None]
